FAERS Safety Report 4724907-0 (Version None)
Quarter: 2005Q3

REPORT INFORMATION
  Report Type: 
  Country: None (occurrence: None)
  Receive Date: 20050726
  Receipt Date: 20050715
  Transmission Date: 20060218
  Serious: Yes (Hospitalization, Other)
  Sender: FDA-Public Use
  Company Number: US-JNJFOC-20050703542

PATIENT
  Sex: Female
  Weight: 62.6 kg

DRUGS (2)
  1. DURAGESIC-100 [Suspect]
     Route: 062
     Dates: start: 20050615
  2. TYLENOL [Concomitant]
     Indication: PAIN
     Dosage: AS NECESSARY
     Route: 048

REACTIONS (5)
  - DEHYDRATION [None]
  - HIATUS HERNIA [None]
  - NAUSEA [None]
  - URINARY TRACT INFECTION [None]
  - VOMITING [None]
